FAERS Safety Report 24271083 (Version 1)
Quarter: 2024Q3

REPORT INFORMATION
  Report Type: Spontaneous
  Country: GB (occurrence: GB)
  Receive Date: 20240831
  Receipt Date: 20240831
  Transmission Date: 20241017
  Serious: Yes (Other)
  Sender: AZURITY PHARMACEUTICALS
  Company Number: GB-AZURITY PHARMACEUTICALS, INC.-AZR202408-000482

PATIENT
  Sex: Male

DRUGS (1)
  1. TRIPTODUR [Suspect]
     Active Substance: TRIPTORELIN
     Indication: Product used for unknown indication
     Dosage: UNK
     Route: 065
     Dates: start: 202105

REACTIONS (5)
  - Erectile dysfunction [Unknown]
  - Night sweats [Unknown]
  - Insomnia [Unknown]
  - Fatigue [Unknown]
  - Mood swings [Unknown]

NARRATIVE: CASE EVENT DATE: 20210501
